FAERS Safety Report 8516310-2 (Version None)
Quarter: 2012Q3

REPORT INFORMATION
  Report Type: 
  Country: None (occurrence: None)
  Receive Date: 20120717
  Receipt Date: 20120712
  Transmission Date: 20120928
  Serious: Yes (Other)
  Sender: FDA-Public Use
  Company Number: US-AMGEN-USASP2011066202

PATIENT
  Age: 56 Year
  Sex: Female

DRUGS (4)
  1. ENBREL [Suspect]
     Indication: RHEUMATOID ARTHRITIS
     Dosage: 25 MG, 2 TIMES/WK
     Dates: start: 20040505
  2. PLAQUENIL [Concomitant]
     Dosage: 1 MG, QD
     Dates: start: 20100101
  3. TREXALL [Concomitant]
     Dosage: 1 MG, QWK
     Dates: start: 20100101
  4. ENBREL [Suspect]
     Indication: PSORIATIC ARTHROPATHY
     Dosage: 25 MG, 2 TIMES/WK
     Dates: start: 20110930, end: 20120301

REACTIONS (7)
  - EYELID OEDEMA [None]
  - PARAESTHESIA [None]
  - SKIN SWELLING [None]
  - HYPERAESTHESIA [None]
  - HYPOAESTHESIA [None]
  - DRUG EFFECT DECREASED [None]
  - OEDEMA PERIPHERAL [None]
